FAERS Safety Report 16791036 (Version 2)
Quarter: 2019Q3

REPORT INFORMATION
  Report Type: Spontaneous
  Country: DE (occurrence: DE)
  Receive Date: 20190910
  Receipt Date: 20190919
  Transmission Date: 20191005
  Serious: Yes (Hospitalization)
  Sender: FDA-Public Use
  Company Number: DE-PFIZER INC-2019386594

PATIENT

DRUGS (13)
  1. SYREA [Concomitant]
     Active Substance: HYDROXYUREA
     Indication: MYELOFIBROSIS
     Dosage: 500 MG, 1X/DAY(0-0-1)
     Route: 048
  2. DEXAMETHASONE. [Concomitant]
     Active Substance: DEXAMETHASONE
     Indication: PROPHYLAXIS
     Dosage: 10 MG, EVERY 3 WEEKS
     Route: 042
     Dates: start: 20190301
  3. CANDESARTAN. [Concomitant]
     Active Substance: CANDESARTAN
     Indication: HYPERTENSION
     Dosage: 16 MG, 1X/DAY (1-0-0)
     Route: 048
  4. PANTOPRAZOLE [Concomitant]
     Active Substance: PANTOPRAZOLE
     Indication: HERNIA
     Dosage: 40 MG, 1X/DAY(1-0-0)
     Route: 048
  5. HCT [Concomitant]
     Active Substance: HYDROCHLOROTHIAZIDE
     Indication: HYPERTENSION
     Dosage: 12.5 MG, 1X/DAY (1-0-0)
     Route: 048
  6. PARACETAMOL [Concomitant]
     Active Substance: ACETAMINOPHEN
     Indication: PROPHYLAXIS
     Dosage: 500 MG, EVERY 3 WEEKS
     Route: 048
     Dates: start: 20190301
  7. ONPATTRO [Suspect]
     Active Substance: PATISIRAN SODIUM
     Indication: HEREDITARY NEUROPATHIC AMYLOIDOSIS
     Dosage: 0.3 MG/KG, EVERY 3 WEEKS
     Route: 042
     Dates: start: 20190501
  8. IBUPROFEN. [Suspect]
     Active Substance: IBUPROFEN
     Indication: BACK PAIN
     Dosage: UNK, SINGLE
     Dates: start: 20190704
  9. VITAMIN A [RETINOL] [Concomitant]
     Active Substance: RETINOL
     Indication: PROPHYLAXIS
     Dosage: 2500 IU, EVERY 3 WEEKS (Q3W)
     Route: 048
     Dates: start: 201903
  10. RANITIDINE. [Concomitant]
     Active Substance: RANITIDINE
     Indication: PROPHYLAXIS
     Dosage: 50 MG, EVERY 3 WEEKS (Q3W)
     Route: 042
     Dates: start: 20190301
  11. XARELTO [Concomitant]
     Active Substance: RIVAROXABAN
     Dosage: 20 MG, 1X/DAY (1-0-0)
     Route: 048
  12. PREGABALIN. [Concomitant]
     Active Substance: PREGABALIN
     Indication: POLYNEUROPATHY
     Dosage: 75 MG, 1X/DAY(1-0-0)
     Route: 048
  13. DIMETHINDENE MALEATE [Concomitant]
     Active Substance: DIMETHINDENE MALEATE
     Indication: PROPHYLAXIS
     Dosage: 4 MG, EVERY 3 WEEKS
     Route: 042
     Dates: start: 201903

REACTIONS (1)
  - Small intestinal haemorrhage [Recovered/Resolved]

NARRATIVE: CASE EVENT DATE: 20190705
